FAERS Safety Report 14983161 (Version 1)
Quarter: 2018Q2

REPORT INFORMATION
  Report Type: Spontaneous
  Country: TW (occurrence: TW)
  Receive Date: 20180607
  Receipt Date: 20180607
  Transmission Date: 20180711
  Serious: Yes (Other)
  Sender: FDA-Public Use
  Company Number: TW-ACCORD-067845

PATIENT
  Age: 58 Year
  Sex: Female

DRUGS (9)
  1. RANIMUSTINE [Suspect]
     Active Substance: RANIMUSTINE
     Indication: HUMAN T-CELL LYMPHOTROPIC VIRUS TYPE I INFECTION
  2. PREDNISONE. [Suspect]
     Active Substance: PREDNISONE
     Indication: HUMAN T-CELL LYMPHOTROPIC VIRUS TYPE I INFECTION
  3. ETOPOSIDE. [Suspect]
     Active Substance: ETOPOSIDE
     Indication: HUMAN T-CELL LYMPHOTROPIC VIRUS TYPE I INFECTION
  4. CYCLOPHOSPHAMIDE/CYCLOPHOSPHAMIDE MONOHYDRATE [Suspect]
     Active Substance: CYCLOPHOSPHAMIDE
     Indication: HUMAN T-CELL LYMPHOTROPIC VIRUS TYPE I INFECTION
  5. ZIDOVUDINE. [Suspect]
     Active Substance: ZIDOVUDINE
     Indication: HUMAN T-CELL LYMPHOTROPIC VIRUS TYPE I INFECTION
  6. VINDESINE/VINDESINE SULFATE [Suspect]
     Active Substance: VINDESINE
     Indication: HUMAN T-CELL LYMPHOTROPIC VIRUS TYPE I INFECTION
  7. VINCRISTINE [Suspect]
     Active Substance: VINCRISTINE
     Indication: HUMAN T-CELL LYMPHOTROPIC VIRUS TYPE I INFECTION
  8. DOXORUBICIN [Suspect]
     Active Substance: DOXORUBICIN
     Indication: HUMAN T-CELL LYMPHOTROPIC VIRUS TYPE I INFECTION
  9. CARBOPLATIN. [Suspect]
     Active Substance: CARBOPLATIN
     Indication: HUMAN T-CELL LYMPHOTROPIC VIRUS TYPE I INFECTION

REACTIONS (1)
  - Venous thrombosis [Unknown]
